FAERS Safety Report 18510278 (Version 2)
Quarter: 2020Q4

REPORT INFORMATION
  Report Type: Spontaneous
  Country: BR (occurrence: BR)
  Receive Date: 20201117
  Receipt Date: 20201130
  Transmission Date: 20210114
  Serious: Yes (Other)
  Sender: FDA-Public Use
  Company Number: BR-EMD SERONO-9197618

PATIENT
  Age: 74 Year
  Sex: Female

DRUGS (2)
  1. GLIFAGE XR [Suspect]
     Active Substance: METFORMIN HYDROCHLORIDE
     Indication: DIABETES MELLITUS
     Route: 048
  2. PYRIDOXAMINE HYDROCHLORIDE\THIAMINE HYDROCHLORIDE\CYANOCOBALAMIN [Concomitant]
     Active Substance: CYANOCOBALAMIN\PYRIDOXAMINE HYDROCHLORIDE\THIAMINE HYDROCHLORIDE
     Indication: DIABETIC NEUROPATHY
     Dosage: 1 CITONEURIN OF 1000 UNITS

REACTIONS (1)
  - Spondylolisthesis [Unknown]
